FAERS Safety Report 24914235 (Version 1)
Quarter: 2025Q1

REPORT INFORMATION
  Report Type: Spontaneous
  Country: US (occurrence: US)
  Receive Date: 20250202
  Receipt Date: 20250202
  Transmission Date: 20250409
  Serious: No
  Sender: ALKEM
  Company Number: US-ALKEM LABORATORIES LIMITED-US-ALKEM-2024-16005

PATIENT
  Age: 3 Year

DRUGS (1)
  1. SILVER SULFADIAZINE [Suspect]
     Active Substance: SILVER SULFADIAZINE
     Indication: Pruritus
     Route: 065

REACTIONS (2)
  - Accidental exposure to product by child [Unknown]
  - Product use in unapproved indication [Unknown]
